FAERS Safety Report 9125930 (Version 2)
Quarter: 2013Q3

REPORT INFORMATION
  Report Type: Report from Study
  Country: BE (occurrence: BE)
  Receive Date: 20130117
  Receipt Date: 20130819
  Transmission Date: 20140515
  Serious: Yes (Hospitalization)
  Sender: FDA-Public Use
  Company Number: BE-SANOFI-AVENTIS-2013SA002879

PATIENT
  Age: 57 Year
  Sex: Male
  Weight: 101 kg

DRUGS (8)
  1. CABAZITAXEL [Suspect]
     Indication: ORAL CAVITY CANCER METASTATIC
     Route: 042
     Dates: start: 20120926, end: 20120926
  2. TETRAZEPAM [Concomitant]
     Indication: PROPHYLAXIS
     Dates: start: 201206
  3. AMLOR [Concomitant]
     Indication: VASOSPASM
     Dates: start: 20120709
  4. ACETYLCYSTEINE [Concomitant]
     Dates: start: 20120709
  5. DAFALGAN [Concomitant]
     Indication: PAIN
     Dates: start: 201207
  6. LITICAN [Concomitant]
     Indication: PROPHYLAXIS OF NAUSEA AND VOMITING
     Dates: start: 201206
  7. ZYRTEC [Concomitant]
     Indication: CHEMOTHERAPY
     Dates: start: 20120925
  8. DEXAMETHASONE [Concomitant]
     Dates: start: 20120925

REACTIONS (1)
  - Hyperglycaemia [Recovered/Resolved]
